FAERS Safety Report 9690481 (Version 2)
Quarter: 2014Q2

REPORT INFORMATION
  Report Type: Spontaneous
  Country: JP (occurrence: JP)
  Receive Date: 20131115
  Receipt Date: 20140604
  Transmission Date: 20141212
  Serious: Yes (Other)
  Sender: FDA-Public Use
  Company Number: JP-PFIZER INC-2013322456

PATIENT
  Age: 55 Year
  Sex: Female
  Weight: 43 kg

DRUGS (17)
  1. ADRIACIN [Suspect]
     Dosage: UNK
     Route: 041
  2. KW-0761 [Suspect]
     Indication: ADULT T-CELL LYMPHOMA/LEUKAEMIA
     Dosage: 1 MG/KG, WEEKLY
     Route: 041
     Dates: start: 20130418, end: 20130426
  3. KW-0761 [Suspect]
     Dosage: 1 MG/KG, WEEKLY
     Route: 041
     Dates: start: 20130508, end: 20130515
  4. KW-0761 [Suspect]
     Dosage: 1 MG/KG, 1X/DAY
     Route: 041
     Dates: start: 20130815, end: 20130815
  5. CYCLOPHOSPHAMIDE HYDRATE [Suspect]
     Dosage: UNK
  6. VINCRISTINE SULFATE [Suspect]
  7. PREDNISOLONE [Suspect]
     Route: 048
  8. DIPHENHYDRAMINE HYDROCHLORIDE [Concomitant]
     Indication: PROPHYLAXIS
     Dosage: 1X/WEEK
     Dates: start: 20130418, end: 20130426
  9. DIPHENHYDRAMINE HYDROCHLORIDE [Concomitant]
     Dosage: 1X/WEEK
     Dates: start: 20130508, end: 20130515
  10. DIPHENHYDRAMINE HYDROCHLORIDE [Concomitant]
     Dosage: 1X/DAY
     Dates: start: 20130815, end: 20130815
  11. ACETAMINOPHEN [Concomitant]
     Indication: PROPHYLAXIS
     Dosage: 1X/WEEK
     Dates: start: 20130418, end: 20130426
  12. ACETAMINOPHEN [Concomitant]
     Dosage: 1X/WEEK
     Dates: start: 20130508, end: 20130515
  13. ACETAMINOPHEN [Concomitant]
     Dosage: 1X/DAY
     Dates: start: 20130815, end: 20130815
  14. SOL-MELCORT [Concomitant]
     Indication: PROPHYLAXIS
     Dosage: 125 MG, WEEKLY
     Route: 041
     Dates: start: 20130418, end: 20130426
  15. SOL-MELCORT [Concomitant]
     Dosage: 125 MG, WEEKLY
     Route: 041
     Dates: start: 20130508, end: 20130515
  16. SOL-MELCORT [Concomitant]
     Dosage: 125 MG, 1X/DAY
     Route: 041
     Dates: start: 20130815, end: 20130815
  17. METHOTREXATE [Concomitant]

REACTIONS (3)
  - Rash [Recovering/Resolving]
  - Pharyngitis [Recovering/Resolving]
  - Neutropenia [Recovering/Resolving]
